FAERS Safety Report 7454333-5 (Version None)
Quarter: 2011Q2

REPORT INFORMATION
  Report Type: 
  Country: None (occurrence: None)
  Receive Date: 20110503
  Receipt Date: 20110421
  Transmission Date: 20111010
  Serious: Yes (Hospitalization, Other)
  Sender: FDA-Public Use
  Company Number: JP-JNJFOC-20100800302

PATIENT
  Sex: Female
  Weight: 57 kg

DRUGS (10)
  1. PROPIVERINE HYDROCHLORIDE [Concomitant]
     Indication: NEUROGENIC BLADDER
     Route: 048
  2. PLACEBO [Suspect]
     Indication: RHEUMATOID ARTHRITIS
     Route: 058
  3. BONALON [Concomitant]
     Indication: OSTEOPOROSIS PROPHYLAXIS
     Route: 048
  4. GOLIMUMAB [Suspect]
     Route: 058
  5. KETOPROFEN [Concomitant]
     Indication: RHEUMATOID ARTHRITIS
     Route: 062
  6. KNORAMIN L [Concomitant]
     Indication: HYPERTENSION
     Route: 048
  7. GOLIMUMAB [Suspect]
     Indication: RHEUMATOID ARTHRITIS
     Route: 058
  8. HEAVY MAGNESIUM OXIDE [Concomitant]
     Indication: CONSTIPATION
     Route: 048
  9. CIMETIDINE [Concomitant]
     Indication: PROPHYLAXIS AGAINST GASTROINTESTINAL ULCER
     Route: 048
  10. PREDONINE [Concomitant]
     Indication: RHEUMATOID ARTHRITIS
     Route: 048

REACTIONS (2)
  - LUMBAR SPINAL STENOSIS [None]
  - SPONDYLOLISTHESIS [None]
